FAERS Safety Report 5730566-0 (Version None)
Quarter: 2008Q2

REPORT INFORMATION
  Report Type: 
  Country: None (occurrence: None)
  Receive Date: 20080507
  Receipt Date: 20080428
  Transmission Date: 20081010
  Serious: Yes (Death, Congenital Anomaly)
  Sender: FDA-Public Use
  Company Number: A0685051A

PATIENT
  Sex: Female

DRUGS (16)
  1. PAXIL CR [Suspect]
     Indication: PANIC DISORDER
     Dosage: 25MG TWICE PER DAY
     Dates: start: 20040301, end: 20041001
  2. PAXIL [Suspect]
     Indication: PANIC DISORDER
     Dates: start: 20011201, end: 20030101
  3. VITAMIN TAB [Concomitant]
     Indication: PREGNANCY
     Dates: start: 20040601, end: 20041001
  4. CLONAZEPAM [Concomitant]
     Dates: start: 20000101
  5. CLARITIN [Concomitant]
     Indication: MULTIPLE ALLERGIES
     Dates: start: 20000101
  6. FLONASE [Concomitant]
     Indication: MULTIPLE ALLERGIES
     Dates: start: 20000101
  7. ZOFRAN [Concomitant]
     Dates: start: 20040928
  8. KLONOPIN [Concomitant]
  9. AMBIEN [Concomitant]
  10. DEPAKOTE ER [Concomitant]
  11. CEPHALEXIN [Concomitant]
  12. TRIAMCINOLONE [Concomitant]
  13. VICODIN [Concomitant]
     Dates: start: 20040928
  14. PHENERGAN [Concomitant]
     Dates: start: 20040928
  15. MS04 [Concomitant]
     Dates: start: 20040928
  16. DILAUDID [Concomitant]
     Dates: start: 20040928

REACTIONS (8)
  - CONGENITAL ANOMALY [None]
  - DEATH [None]
  - DRUG EXPOSURE DURING PREGNANCY [None]
  - EXOMPHALOS [None]
  - KYPHOSCOLIOSIS [None]
  - LIMB MALFORMATION [None]
  - STILLBIRTH [None]
  - TALIPES [None]
